FAERS Safety Report 15486166 (Version 2)
Quarter: 2018Q4

REPORT INFORMATION
  Report Type: Spontaneous
  Country: IT (occurrence: IT)
  Receive Date: 20181011
  Receipt Date: 20181018
  Transmission Date: 20190205
  Serious: Yes (Other)
  Sender: FDA-Public Use
  Company Number: IT-TEVA-2018-IT-963024

PATIENT
  Age: 96 Year
  Sex: Male

DRUGS (13)
  1. CLEXANE [Suspect]
     Active Substance: ENOXAPARIN SODIUM
     Indication: BEDRIDDEN
     Dosage: 4000 KU DAILY;
     Route: 058
  2. FOLINA [Concomitant]
     Active Substance: FOLIC ACID
     Route: 065
  3. LASITONE [Concomitant]
     Active Substance: FUROSEMIDE\SPIRONOLACTONE
     Route: 065
  4. MICROSER [Concomitant]
     Active Substance: BETAHISTINE HYDROCHLORIDE
     Route: 065
  5. CROMATONFERRO [Concomitant]
     Route: 065
  6. LASIX [Concomitant]
     Active Substance: FUROSEMIDE
     Route: 065
  7. TACHIDOL [Concomitant]
     Active Substance: ACETAMINOPHEN\CODEINE PHOSPHATE
     Route: 065
  8. SOLARAZE [Concomitant]
     Active Substance: DICLOFENAC SODIUM
     Route: 065
  9. LANSOPRAZOLE. [Concomitant]
     Active Substance: LANSOPRAZOLE
     Route: 065
  10. TICLOPIDINE [Suspect]
     Active Substance: TICLOPIDINE
     Indication: ARTERIAL DISORDER
     Dosage: 250 MILLIGRAM DAILY;
     Route: 048
  11. MIRTAZAPINE. [Concomitant]
     Active Substance: MIRTAZAPINE
     Route: 065
  12. TRITTICO [Concomitant]
     Active Substance: TRAZODONE HYDROCHLORIDE
     Route: 065
  13. SIVASTIN [Concomitant]
     Active Substance: SIMVASTATIN
     Route: 065

REACTIONS (3)
  - Rectal ulcer [Unknown]
  - Anaemia [Unknown]
  - Rectal haemorrhage [Unknown]

NARRATIVE: CASE EVENT DATE: 20180920
